FAERS Safety Report 7795597-8 (Version None)
Quarter: 2011Q4

REPORT INFORMATION
  Report Type: 
  Country: None (occurrence: None)
  Receive Date: 20111004
  Receipt Date: 20110927
  Transmission Date: 20120403
  Serious: Yes (Hospitalization)
  Sender: FDA-Public Use
  Company Number: US-GLAXOSMITHKLINE-A0936501A

PATIENT
  Age: 70 Year
  Sex: Female

DRUGS (18)
  1. SPIRIVA [Concomitant]
  2. OMEPRAZOLE [Concomitant]
  3. CLONIDINE [Concomitant]
  4. METFORMIN HCL [Concomitant]
  5. AMITRIPTYLINE HCL [Concomitant]
  6. FUROSEMIDE [Concomitant]
  7. PINDOLOL [Concomitant]
  8. METHYLPHENIDATE [Concomitant]
  9. DIAZEPAM [Concomitant]
  10. ADVAIR DISKUS 100/50 [Suspect]
     Indication: CHRONIC OBSTRUCTIVE PULMONARY DISEASE
     Dosage: 1PUFF TWICE PER DAY
     Route: 055
     Dates: start: 20100701
  11. ASPIRIN [Concomitant]
  12. UNSPECIFIED MEDICATION [Concomitant]
  13. GLIMEPIRIDE [Concomitant]
  14. LORTAB [Concomitant]
  15. WATER PILL [Concomitant]
  16. NIFEDIPINE [Concomitant]
  17. GABAPENTIN [Concomitant]
  18. METOPROLOL TARTRATE [Concomitant]

REACTIONS (4)
  - PNEUMONIA [None]
  - SUFFOCATION FEELING [None]
  - DYSPNOEA [None]
  - OXYGEN SATURATION DECREASED [None]
